FAERS Safety Report 8925234 (Version 1)
Quarter: 2012Q4

REPORT INFORMATION
  Report Type: 
  Country: US (occurrence: US)
  Receive Date: 20121126
  Receipt Date: 20121126
  Transmission Date: 20130627
  Serious: Yes (Hospitalization)
  Sender: FDA-Public Use
  Company Number: US-BAYER-2012-120754

PATIENT
  Age: 54 Year
  Sex: Female

DRUGS (8)
  1. YAZ [Suspect]
  2. ATENOLOL [Concomitant]
     Indication: HYPERTENSION
     Dosage: 50 mg, BID
  3. PRILOSEC [Concomitant]
     Indication: GASTROESOPHAGEAL REFLUX DISEASE
     Dosage: 20 mg, every day
  4. EFFEXOR XR [Concomitant]
     Dosage: 75 mg, daily
  5. DICLOFENAC SODIUM [Concomitant]
     Dosage: 75 mg, BID
  6. VOLTAREN [Concomitant]
  7. LODINE [Concomitant]
  8. B12 [Concomitant]
     Dosage: 1000mcg 10 ML

REACTIONS (1)
  - Pulmonary embolism [None]
